FAERS Safety Report 4607662-4 (Version None)
Quarter: 2005Q1

REPORT INFORMATION
  Report Type: 
  Country: None (occurrence: None)
  Receive Date: 20050310
  Receipt Date: 20050228
  Transmission Date: 20050727
  Serious: Yes (Death, Hospitalization)
  Sender: FDA-Public Use
  Company Number: 2005038144

PATIENT
  Age: 56 Year
  Sex: Female
  Weight: 61 kg

DRUGS (4)
  1. EPIRUBICIN [Suspect]
     Indication: CHEMOTHERAPY
     Dosage: 100 MG, INTRAVENOUS
     Route: 042
     Dates: start: 20041025, end: 20050103
  2. PEGFILGRASTIM (PEGFILGRASTIM) [Suspect]
     Indication: CHEMOTHERAPY
     Dosage: 6 MG, SUBCUTANEOUS
     Route: 058
     Dates: start: 20041025, end: 20050104
  3. DOCETAXEL (DOCETAXEL) [Suspect]
     Indication: ILL-DEFINED DISORDER
     Dosage: 100 MG, INTRAVENOUS
     Route: 042
     Dates: start: 20041025, end: 20050103
  4. ERYTHROPOIETIN HUMAN (ETYTHROPOIETIN HUMAN) [Concomitant]

REACTIONS (8)
  - ANAEMIA [None]
  - ESCHERICHIA BACTERAEMIA [None]
  - FEBRILE BONE MARROW APLASIA [None]
  - GASTROINTESTINAL HAEMORRHAGE [None]
  - HEPATIC FAILURE [None]
  - SEPTIC SHOCK [None]
  - SHOCK HAEMORRHAGIC [None]
  - STREPTOCOCCAL INFECTION [None]
